FAERS Safety Report 7484384-6 (Version None)
Quarter: 2011Q2

REPORT INFORMATION
  Report Type: 
  Country: None (occurrence: None)
  Receive Date: 20110517
  Receipt Date: 20110317
  Transmission Date: 20111010
  Serious: Yes (Hospitalization, Other)
  Sender: FDA-Public Use
  Company Number: US-BAYER-201038649NA

PATIENT
  Age: 25 Year
  Sex: Female
  Weight: 129.25 kg

DRUGS (5)
  1. HYDROCHLOROTHIAZIDE [Concomitant]
  2. FLUOXETINE [Concomitant]
  3. FAMOTIDINE [Concomitant]
  4. VICODIN [Concomitant]
  5. YASMIN [Suspect]
     Indication: PRODUCT USED FOR UNKNOWN INDICATION
     Dosage: UNK
     Route: 048
     Dates: start: 20040101

REACTIONS (9)
  - CHOLECYSTITIS CHRONIC [None]
  - BILE DUCT OBSTRUCTION [None]
  - PROCEDURAL PAIN [None]
  - ABDOMINAL PAIN [None]
  - VOMITING [None]
  - BILE DUCT STONE [None]
  - JAUNDICE [None]
  - GALLBLADDER NON-FUNCTIONING [None]
  - ABDOMINAL TENDERNESS [None]
